FAERS Safety Report 4759181-2 (Version None)
Quarter: 2005Q3

REPORT INFORMATION
  Report Type: 
  Country: None (occurrence: None)
  Receive Date: 20050901
  Receipt Date: 20050822
  Transmission Date: 20060218
  Serious: Yes (Hospitalization)
  Sender: FDA-Public Use
  Company Number: 2005UW12673

PATIENT
  Age: 19295 Day
  Sex: Female
  Weight: 125.4 kg

DRUGS (7)
  1. IRESSA [Suspect]
     Indication: BREAST CANCER STAGE IV
     Route: 048
  2. TAXOTERE [Suspect]
     Indication: BREAST CANCER STAGE IV
     Route: 042
     Dates: start: 20050505, end: 20050616
  3. HERCEPTIN [Suspect]
     Indication: BREAST CANCER STAGE IV
     Route: 042
     Dates: start: 20050505, end: 20050616
  4. HYDROCHLOROTHIAZIDE [Concomitant]
  5. PAXIL [Concomitant]
  6. DEPAKOTE [Concomitant]
  7. DECADRON [Concomitant]

REACTIONS (3)
  - BACTERAEMIA [None]
  - PYREXIA [None]
  - STAPHYLOCOCCAL BACTERAEMIA [None]
